FAERS Safety Report 10974201 (Version 1)
Quarter: 2015Q2

REPORT INFORMATION
  Report Type: Spontaneous
  Country: IT (occurrence: IT)
  Receive Date: 20150401
  Receipt Date: 20150401
  Transmission Date: 20150821
  Serious: Yes (Hospitalization)
  Sender: FDA-Public Use
  Company Number: IT-ROCHE-1539755

PATIENT
  Age: 63 Year
  Sex: Female

DRUGS (1)
  1. KADCYLA [Suspect]
     Active Substance: ADO-TRASTUZUMAB EMTANSINE
     Indication: BREAST CANCER STAGE IV
     Route: 042
     Dates: start: 20141210, end: 20150107

REACTIONS (2)
  - Hypertransaminasaemia [Recovered/Resolved]
  - Hepatitis C RNA increased [Recovered/Resolved]

NARRATIVE: CASE EVENT DATE: 20150117
